FAERS Safety Report 8047089-9 (Version None)
Quarter: 2012Q1

REPORT INFORMATION
  Report Type: 
  Country: None (occurrence: None)
  Receive Date: 20120116
  Receipt Date: 20120109
  Transmission Date: 20120608
  Serious: Yes (Other)
  Sender: FDA-Public Use
  Company Number: BR-JNJFOC-20120104717

PATIENT
  Sex: Male
  Weight: 92 kg

DRUGS (3)
  1. NICORETTE [Suspect]
     Indication: SMOKING CESSATION THERAPY
     Dosage: THREE TO FIVE PIECES A DAY
     Route: 048
     Dates: start: 20101101
  2. NICORETTE [Suspect]
     Route: 048
     Dates: start: 20070101
  3. INSULIN [Concomitant]
     Indication: DIABETES MELLITUS
     Dosage: 50 UNITS
     Route: 065

REACTIONS (3)
  - DEPENDENCE [None]
  - INTENTIONAL DRUG MISUSE [None]
  - INCORRECT DRUG ADMINISTRATION DURATION [None]
